FAERS Safety Report 4448847-X (Version None)
Quarter: 2004Q3

REPORT INFORMATION
  Report Type: 
  Country: None (occurrence: None)
  Receive Date: 20040909
  Receipt Date: 20040817
  Transmission Date: 20050211
  Serious: No
  Sender: FDA-Public Use
  Company Number: USA040875780

PATIENT
  Age: 12 Year
  Sex: Male

DRUGS (1)
  1. STRATTERA [Suspect]
     Dates: start: 20040201

REACTIONS (3)
  - ALANINE AMINOTRANSFERASE INCREASED [None]
  - STOMACH DISCOMFORT [None]
  - VIRAL INFECTION [None]
